FAERS Safety Report 23400493 (Version 3)
Quarter: 2024Q2

REPORT INFORMATION
  Report Type: Spontaneous
  Country: US (occurrence: US)
  Receive Date: 20240115
  Receipt Date: 20240408
  Transmission Date: 20240716
  Serious: Yes (Other)
  Sender: FDA-Public Use
  Company Number: US-LUPIN PHARMACEUTICALS INC.-2024-00087

PATIENT

DRUGS (1)
  1. SIMVASTATIN [Suspect]
     Active Substance: SIMVASTATIN
     Indication: Product used for unknown indication
     Dosage: UNK (TAKE HALF TABLET DAILY)
     Route: 065

REACTIONS (4)
  - Myocardial infarction [Unknown]
  - Unevaluable event [Unknown]
  - Product expiration date issue [Unknown]
  - Wrong technique in product usage process [Unknown]
